FAERS Safety Report 9197034 (Version 1)
Quarter: 2013Q1

REPORT INFORMATION
  Report Type: Spontaneous
  Country: US (occurrence: US)
  Receive Date: 20130328
  Receipt Date: 20130328
  Transmission Date: 20140127
  Serious: No
  Sender: FDA-Public Use
  Company Number: US-BAYER-2013-038904

PATIENT
  Sex: 0

DRUGS (1)
  1. ALEVE [Suspect]
     Dosage: UNK DF, UNK

REACTIONS (2)
  - Drug ineffective [None]
  - Abdominal discomfort [None]
